FAERS Safety Report 7657391-8 (Version None)
Quarter: 2011Q3

REPORT INFORMATION
  Report Type: 
  Country: None (occurrence: None)
  Receive Date: 20110804
  Receipt Date: 20110726
  Transmission Date: 20111222
  Serious: Yes (Hospitalization, Other)
  Sender: FDA-Public Use
  Company Number: PHEH2004US12293

PATIENT
  Sex: Female
  Weight: 56.689 kg

DRUGS (10)
  1. ZOMETA [Suspect]
     Dosage: 4 MG, Q 4 WEEKS
     Route: 042
     Dates: start: 20020411, end: 20040129
  2. PROVERA [Concomitant]
  3. MELPHALAN HYDROCHLORIDE [Concomitant]
  4. RITUXAN [Concomitant]
  5. NEUPOGEN [Concomitant]
  6. AREDIA [Suspect]
     Indication: MULTIPLE MYELOMA
     Dosage: 90 MG, Q 4 WEEKS
     Dates: start: 19980918, end: 20020314
  7. CLINDAMYCIN HCL [Concomitant]
     Indication: OSTEONECROSIS
     Dosage: 300 MG, TID
     Route: 065
     Dates: start: 20031113, end: 20040809
  8. PREMARIN [Concomitant]
  9. FOSAMAX [Concomitant]
  10. IMMUNOGLOBULINS [Concomitant]
     Indication: IMMUNOSUPPRESSION
     Dates: start: 20041201

REACTIONS (54)
  - PLEURAL EFFUSION [None]
  - CHOLELITHIASIS [None]
  - BREAST CANCER IN SITU [None]
  - DERMATITIS EXFOLIATIVE [None]
  - HERPES ZOSTER [None]
  - SEPSIS [None]
  - EMPYEMA [None]
  - PANCYTOPENIA [None]
  - ATELECTASIS [None]
  - RASH [None]
  - WEIGHT DECREASED [None]
  - DYSPHAGIA [None]
  - OSTEITIS [None]
  - MASS [None]
  - CORONARY ARTERY DISEASE [None]
  - BLOOD IMMUNOGLOBULIN G DECREASED [None]
  - CONJUNCTIVITIS [None]
  - SKIN FRAGILITY [None]
  - PRURITUS [None]
  - BLOOD URINE [None]
  - DELIRIUM [None]
  - OSTEONECROSIS OF JAW [None]
  - BONE DISORDER [None]
  - GINGIVAL RECESSION [None]
  - B-CELL LYMPHOMA [None]
  - EPIDERMAL NECROSIS [None]
  - BETA 2 MICROGLOBULIN INCREASED [None]
  - BLOOD IMMUNOGLOBULIN A DECREASED [None]
  - PYREXIA [None]
  - LETHARGY [None]
  - DENTAL ALVEOLAR ANOMALY [None]
  - BONE SWELLING [None]
  - TYPE 2 DIABETES MELLITUS [None]
  - ANAEMIA [None]
  - THYROID CYST [None]
  - HAEMATURIA [None]
  - POST HERPETIC NEURALGIA [None]
  - DECUBITUS ULCER [None]
  - SKIN LESION [None]
  - PAIN [None]
  - CONFUSIONAL STATE [None]
  - DIVERTICULITIS [None]
  - VAGINAL HAEMORRHAGE [None]
  - JAW DISORDER [None]
  - FIBROCYSTIC BREAST DISEASE [None]
  - BLOOD IMMUNOGLOBULIN M INCREASED [None]
  - FAILURE TO THRIVE [None]
  - CELLULITIS [None]
  - ABSCESS INTESTINAL [None]
  - NORMOCHROMIC NORMOCYTIC ANAEMIA [None]
  - BREAST HYPERPLASIA [None]
  - SERUM SICKNESS [None]
  - ASTHENIA [None]
  - PARANOIA [None]
